FAERS Safety Report 7976698-8 (Version None)
Quarter: 2011Q4

REPORT INFORMATION
  Report Type: 
  Country: None (occurrence: None)
  Receive Date: 20111213
  Receipt Date: 20111031
  Transmission Date: 20120403
  Serious: No
  Sender: FDA-Public Use
  Company Number: US-AMGEN-USASP2011056678

PATIENT
  Age: 39 Year
  Sex: Female

DRUGS (1)
  1. ENBREL [Suspect]
     Indication: RHEUMATOID ARTHRITIS
     Dosage: 50 MG, QWK
     Dates: start: 20101001

REACTIONS (14)
  - INJECTION SITE PRURITUS [None]
  - FATIGUE [None]
  - INJECTION SITE PAIN [None]
  - INJECTION SITE WARMTH [None]
  - INJECTION SITE URTICARIA [None]
  - JOINT INJURY [None]
  - JOINT EFFUSION [None]
  - BEDRIDDEN [None]
  - PHARYNGITIS [None]
  - CARTILAGE INJURY [None]
  - BRONCHITIS [None]
  - SJOGREN'S SYNDROME [None]
  - SYNOVIAL CYST [None]
  - LOWER RESPIRATORY TRACT INFECTION [None]
